FAERS Safety Report 6249755-4 (Version None)
Quarter: 2009Q2

REPORT INFORMATION
  Report Type: 
  Country: None (occurrence: None)
  Receive Date: 20090629
  Receipt Date: 20090623
  Transmission Date: 20091009
  Serious: Yes (Other)
  Sender: FDA-Public Use
  Company Number: JP-AVENTIS-200911632JP

PATIENT
  Age: 74 Year
  Sex: Male

DRUGS (2)
  1. TAXOTERE [Suspect]
     Route: 041
  2. ALL OTHER THERAPEUTIC PRODUCTS [Concomitant]

REACTIONS (1)
  - PENILE ULCERATION [None]
